FAERS Safety Report 6229232-7 (Version None)
Quarter: 2009Q2

REPORT INFORMATION
  Report Type: 
  Country: None (occurrence: None)
  Receive Date: 20090601
  Receipt Date: 20081014
  Transmission Date: 20091009
  Serious: Yes (Other)
  Sender: FDA-Public Use
  Company Number: US200810004203

PATIENT
  Age: 33 Year
  Sex: Female

DRUGS (7)
  1. BYETTA [Suspect]
     Dosage: 5 UG, SUBCUTANEOUS
     Route: 058
     Dates: start: 20080730, end: 20080801
  2. BYETTA [Suspect]
     Dosage: 5 UG, SUBCUTANEOUS
     Route: 058
     Dates: start: 20080101, end: 20080908
  3. EXENATIDE PEN, DISPOSABLE DEVICE (EXENATIDE PEN) [Concomitant]
  4. GLUCOVANCE [Concomitant]
  5. AVANDIA [Concomitant]
  6. ANTI-DIABETICS [Concomitant]
  7. . [Concomitant]

REACTIONS (1)
  - HYPERSENSITIVITY [None]
